FAERS Safety Report 6241331-2 (Version None)
Quarter: 2009Q2

REPORT INFORMATION
  Report Type: 
  Country: None (occurrence: None)
  Receive Date: 20090623
  Receipt Date: 20090618
  Transmission Date: 20091009
  Serious: Yes (Other)
  Sender: FDA-Public Use
  Company Number: US-JNJFOC-20090606741

PATIENT
  Age: 84 Year
  Sex: Female
  Weight: 72.58 kg

DRUGS (7)
  1. PEPCID AC [Suspect]
     Route: 048
  2. PEPCID AC [Suspect]
     Route: 048
  3. PEPCID AC [Suspect]
     Route: 048
  4. PEPCID AC [Suspect]
     Route: 048
  5. PEPCID AC [Suspect]
     Route: 048
  6. PEPCID AC [Suspect]
     Indication: DYSPEPSIA
     Route: 048
  7. ALL OTHER MEDICATION [Concomitant]
     Indication: HYPERTENSION

REACTIONS (3)
  - DRUG INEFFECTIVE [None]
  - HYPERTENSION [None]
  - TINNITUS [None]
